FAERS Safety Report 7843319-4 (Version None)
Quarter: 2011Q4

REPORT INFORMATION
  Report Type: 
  Country: None (occurrence: None)
  Receive Date: 20111025
  Receipt Date: 20111012
  Transmission Date: 20120403
  Serious: Yes (Life-Threatening, Hospitalization)
  Sender: FDA-Public Use
  Company Number: GB-ROCHE-1000308

PATIENT
  Age: 57 Year
  Sex: Male
  Weight: 92.8 kg

DRUGS (4)
  1. SERTRALINE HYDROCHLORIDE [Concomitant]
     Dates: start: 20110601
  2. VEMURAFENIB [Suspect]
     Indication: METASTATIC MALIGNANT MELANOMA
     Dosage: TEMPORARILY INTERRUPTED
     Route: 048
     Dates: start: 20110920, end: 20110924
  3. PROPRANOLOL [Concomitant]
     Dates: start: 20101201
  4. PERINDOPRIL ERBUMINE [Concomitant]
     Dates: start: 20101201

REACTIONS (2)
  - FALL [None]
  - HAEMATOMA [None]
